FAERS Safety Report 5825330-8 (Version None)
Quarter: 2008Q3

REPORT INFORMATION
  Report Type: 
  Country: None (occurrence: None)
  Receive Date: 20080729
  Receipt Date: 20080116
  Transmission Date: 20090109
  Serious: No
  Sender: FDA-Public Use
  Company Number: US-BAYER-200810282BCC

PATIENT
  Age: 82 Year
  Sex: Female
  Weight: 50 kg

DRUGS (8)
  1. ALEVE (CAPLET) [Suspect]
     Indication: ARTHRALGIA
     Dosage: TOTAL DAILY DOSE: 880 MG  UNIT DOSE: 220 MG
     Route: 048
     Dates: start: 20080113, end: 20080114
  2. ALEVE (CAPLET) [Suspect]
     Dosage: TOTAL DAILY DOSE: 220 MG  UNIT DOSE: 220 MG
     Route: 048
     Dates: start: 20080116, end: 20080116
  3. ALEVE (CAPLET) [Suspect]
     Dosage: TOTAL DAILY DOSE: 440 MG  UNIT DOSE: 220 MG
     Route: 048
     Dates: start: 20080115, end: 20080115
  4. NEXIUM [Concomitant]
  5. EVISTA [Concomitant]
  6. VALIUM [Concomitant]
  7. CENTRUM MULTIVITAMIN [Concomitant]
  8. VITAMIN B SUPPLEMENT [Concomitant]

REACTIONS (2)
  - ARTHRALGIA [None]
  - MUSCLE TWITCHING [None]
